FAERS Safety Report 10189455 (Version 2)
Quarter: 2015Q1

REPORT INFORMATION
  Report Type: Spontaneous
  Country: US (occurrence: US)
  Receive Date: 20140522
  Receipt Date: 20150102
  Transmission Date: 20150720
  Serious: Yes (Other)
  Sender: FDA-Public Use
  Company Number: US-PFIZER INC-2014137769

PATIENT
  Age: 54 Year
  Sex: Male

DRUGS (16)
  1. CITALOPRAM [Concomitant]
     Active Substance: CITALOPRAM HYDROBROMIDE
     Indication: DEPRESSION
     Dosage: UNK
     Dates: start: 200702, end: 201312
  2. ATAZANAVIR [Concomitant]
     Active Substance: ATAZANAVIR
     Indication: HIV TEST POSITIVE
     Dosage: UNK
     Dates: start: 200801, end: 201212
  3. FOLIC ACID. [Concomitant]
     Active Substance: FOLIC ACID
     Indication: VITAMIN SUPPLEMENTATION
     Dosage: UNK
     Dates: start: 201110, end: 201310
  4. ETODOLAC. [Concomitant]
     Active Substance: ETODOLAC
     Indication: ANTIINFLAMMATORY THERAPY
     Dosage: UNK
     Dates: start: 200602, end: 201206
  5. TESTOSTERONE CIPIONATE [Suspect]
     Active Substance: TESTOSTERONE
     Indication: HORMONE REPLACEMENT THERAPY
     Dosage: APPROXIMATELY ONE INJECTION, MONTHLY
     Dates: start: 200512, end: 201402
  6. HYDROCODONE [Concomitant]
     Active Substance: HYDROCODONE
     Indication: PAIN
     Dosage: UNK
     Dates: start: 200501, end: 201311
  7. RITONAVIR. [Concomitant]
     Active Substance: RITONAVIR
     Indication: HIV TEST POSITIVE
     Dosage: UNK
     Dates: start: 200804, end: 201401
  8. ANDRODERM [Suspect]
     Active Substance: TESTOSTERONE
     Indication: ASTHENIA
  9. TESTOSTERONE CIPIONATE [Suspect]
     Active Substance: TESTOSTERONE
     Indication: ASTHENIA
  10. ABACAVIR-LAMIVUDINE [Concomitant]
     Indication: HIV TEST POSITIVE
     Dosage: UNK
     Dates: start: 200802, end: 201311
  11. ANDRODERM [Suspect]
     Active Substance: TESTOSTERONE
     Indication: HORMONE REPLACEMENT THERAPY
     Dosage: UNK, 1X/DAY
     Dates: start: 200503, end: 200608
  12. LISINOPRIL. [Concomitant]
     Active Substance: LISINOPRIL
     Indication: HYPERTENSION
     Dosage: UNK
     Dates: start: 200502, end: 201311
  13. DEPO-TESTOSTERONE [Suspect]
     Active Substance: TESTOSTERONE CYPIONATE
     Indication: HORMONE REPLACEMENT THERAPY
     Dosage: UNK
  14. ANDRODERM [Suspect]
     Active Substance: TESTOSTERONE
     Indication: LIBIDO DECREASED
  15. TESTOSTERONE CIPIONATE [Suspect]
     Active Substance: TESTOSTERONE
     Indication: LIBIDO DECREASED
  16. TENOFOVIR [Concomitant]
     Active Substance: TENOFOVIR
     Indication: HIV TEST POSITIVE
     Dosage: UNK
     Dates: start: 200804, end: 201401

REACTIONS (2)
  - Myocardial infarction [Unknown]
  - Cardiac failure congestive [Not Recovered/Not Resolved]

NARRATIVE: CASE EVENT DATE: 20120517
